FAERS Safety Report 6935906-2 (Version None)
Quarter: 2010Q3

REPORT INFORMATION
  Report Type: 
  Country: None (occurrence: None)
  Receive Date: 20100823
  Receipt Date: 20100721
  Transmission Date: 20110219
  Serious: No
  Sender: FDA-Public Use
  Company Number: US-BAYER-201018718BCC

PATIENT
  Age: 30 Year
  Sex: Male

DRUGS (2)
  1. ALEVE (CAPLET) [Suspect]
     Indication: MIGRAINE
     Dosage: TOTAL DAILY DOSE: 440 MG  UNIT DOSE: 220 MG
     Route: 048
     Dates: start: 20100721
  2. TYLENOL NUMBER 3 [Concomitant]
     Indication: MIGRAINE
     Dosage: UNIT DOSE: 1 DF
     Route: 048
     Dates: start: 20100721

REACTIONS (2)
  - COLD SWEAT [None]
  - NAUSEA [None]
